FAERS Safety Report 19504588 (Version 7)
Quarter: 2022Q3

REPORT INFORMATION
  Report Type: Other
  Country: CA (occurrence: None)
  Receive Date: 20210708
  Receipt Date: 20220830
  Transmission Date: 20221026
  Serious: Yes (Other)
  Sender: FDA-Public Use
  Company Number: CA-ROCHE-2489028

PATIENT
  Sex: Male
  Weight: 34 kg

DRUGS (17)
  1. RITUXAN [Suspect]
     Active Substance: RITUXIMAB
     Indication: Transplant rejection
     Route: 065
  2. CELLCEPT [Suspect]
     Active Substance: MYCOPHENOLATE MOFETIL
     Indication: Product used for unknown indication
     Dosage: DRUG DOSE FIRST ADMINISTERED IS UNKNOWN
     Route: 065
  3. ACTEMRA [Suspect]
     Active Substance: TOCILIZUMAB
     Indication: Transplant rejection
     Route: 042
     Dates: start: 20190927, end: 20200924
  4. ACTEMRA [Suspect]
     Active Substance: TOCILIZUMAB
     Indication: Kidney transplant rejection
     Dosage: ONGOING
     Route: 042
     Dates: start: 20210204, end: 20220114
  5. ACTEMRA [Suspect]
     Active Substance: TOCILIZUMAB
     Route: 042
     Dates: start: 20220114, end: 20220311
  6. ACTEMRA [Suspect]
     Active Substance: TOCILIZUMAB
     Route: 042
     Dates: start: 20220408
  7. TACROLIMUS [Suspect]
     Active Substance: TACROLIMUS
     Indication: Product used for unknown indication
     Route: 065
  8. IRON [Concomitant]
     Active Substance: IRON
  9. MELATONIN [Concomitant]
     Active Substance: MELATONIN
  10. METHYLPREDNISOLONE [Concomitant]
     Active Substance: METHYLPREDNISOLONE
     Indication: Transplant rejection
     Dosage: 10 MG/KG - 3 DOSES
  11. PREDNISONE [Concomitant]
     Active Substance: PREDNISONE
  12. SEPTRA [Concomitant]
     Active Substance: SULFAMETHOXAZOLE\TRIMETHOPRIM
  13. SODIUM CHLORIDE [Concomitant]
     Active Substance: SODIUM CHLORIDE
  14. TACROLIMUS [Concomitant]
     Active Substance: TACROLIMUS
  15. THYMOGLOBULIN [Concomitant]
     Active Substance: LAPINE T-LYMPHOCYTE IMMUNE GLOBULIN
     Indication: Transplant rejection
     Dosage: 10 DOSES
  16. TACROLIMUS [Concomitant]
     Active Substance: TACROLIMUS
     Dosage: ONGOING
  17. FERROUS SULFATE [Concomitant]
     Active Substance: FERROUS SULFATE

REACTIONS (22)
  - Neutropenia [Unknown]
  - Glomerulonephritis [Unknown]
  - Neoplasm [Unknown]
  - Tubulointerstitial nephritis [Unknown]
  - Injury [Unknown]
  - Off label use [Unknown]
  - White blood cell count decreased [Recovered/Resolved]
  - Blood creatinine increased [Recovered/Resolved]
  - Heart rate increased [Unknown]
  - Blood pressure systolic decreased [Unknown]
  - Respiratory rate increased [Unknown]
  - Blood pressure diastolic decreased [Unknown]
  - Capillaritis [Unknown]
  - Nasal congestion [Recovered/Resolved]
  - Cough [Recovered/Resolved]
  - Headache [Recovered/Resolved]
  - Nausea [Recovered/Resolved]
  - Vessel puncture site pain [Recovered/Resolved]
  - Blood pressure diastolic abnormal [Unknown]
  - Skin papilloma [Unknown]
  - Mouth ulceration [Unknown]
  - Leukopenia [Recovered/Resolved]
